FAERS Safety Report 5070557-9 (Version None)
Quarter: 2006Q3

REPORT INFORMATION
  Report Type: 
  Country: None (occurrence: None)
  Receive Date: 20060804
  Receipt Date: 20040908
  Transmission Date: 20061208
  Serious: No
  Sender: FDA-Public Use
  Company Number: US-GLAXOSMITHKLINE-A0524939A

PATIENT
  Age: 60 Year
  Sex: Male

DRUGS (3)
  1. NICORETTE (MINT) [Suspect]
  2. NICORETTE (MINT) [Suspect]
  3. COMMIT [Suspect]

REACTIONS (4)
  - ABDOMINAL PAIN UPPER [None]
  - ANXIETY [None]
  - DRUG ABUSER [None]
  - DRUG WITHDRAWAL SYNDROME [None]
